FAERS Safety Report 18097361 (Version 3)
Quarter: 2020Q3

REPORT INFORMATION
  Report Type: Report from Study
  Country: US (occurrence: US)
  Receive Date: 20200730
  Receipt Date: 20200903
  Transmission Date: 20201103
  Serious: Yes (Hospitalization, Other)
  Sender: FDA-Public Use
  Company Number: NVSC2020US208321

PATIENT
  Age: 72 Year
  Sex: Male

DRUGS (2)
  1. ENTRESTO [Suspect]
     Active Substance: SACUBITRIL\VALSARTAN
     Indication: CARDIAC FAILURE
     Dosage: 1 DF, BID (24/26 MG TWICE A DAY)
     Route: 048
  2. CORTISONE [Concomitant]
     Active Substance: CORTISONE
     Indication: BACK PAIN
     Dosage: (3 DAYS BACK)
     Route: 065

REACTIONS (12)
  - Emphysema [Unknown]
  - Neck pain [Not Recovered/Not Resolved]
  - Ejection fraction decreased [Unknown]
  - Pneumonia [Recovering/Resolving]
  - Back pain [Not Recovered/Not Resolved]
  - Arthralgia [Not Recovered/Not Resolved]
  - Catheterisation cardiac [Recovered/Resolved]
  - Septic shock [Unknown]
  - Myocardial infarction [Recovered/Resolved]
  - Musculoskeletal stiffness [Not Recovered/Not Resolved]
  - Blood potassium increased [Unknown]
  - Chronic obstructive pulmonary disease [Unknown]

NARRATIVE: CASE EVENT DATE: 202002
